FAERS Safety Report 13790228 (Version 1)
Quarter: 2017Q3

REPORT INFORMATION
  Report Type: Spontaneous
  Country: US (occurrence: US)
  Receive Date: 20170725
  Receipt Date: 20170725
  Transmission Date: 20171127
  Serious: Yes (Other)
  Sender: FDA-Public Use
  Company Number: US-AMGEN-USASP2017109565

PATIENT
  Age: 82 Year
  Sex: Female

DRUGS (9)
  1. SYNTHROID [Concomitant]
     Active Substance: LEVOTHYROXINE SODIUM
     Dosage: 137 MG, UNK
  2. CALCIUM [Concomitant]
     Active Substance: CALCIUM
  3. PROLIA [Suspect]
     Active Substance: DENOSUMAB
     Indication: OSTEOPOROSIS
     Dosage: UNK, UNK
     Route: 065
  4. D-3 [Concomitant]
     Active Substance: CHOLECALCIFEROL
  5. VITAMIN B COMPLEX [Concomitant]
     Active Substance: CYANOCOBALAMIN\DEXPANTHENOL\NIACINAMIDE\PYRIDOXINE HYDROCHLORIDE\RIBOFLAVIN 5^-PHOSPHATE SODIUM\THIAMINE HYDROCHLORIDE\VITAMIN B COMPLEX
  6. COREG [Concomitant]
     Active Substance: CARVEDILOL
  7. VITAMIN B12 [Concomitant]
     Active Substance: CYANOCOBALAMIN
  8. DIOVAN [Concomitant]
     Active Substance: VALSARTAN
  9. MULTIVITAMINS [Concomitant]
     Active Substance: VITAMINS

REACTIONS (9)
  - Neuropathy peripheral [Unknown]
  - Pain [Not Recovered/Not Resolved]
  - Musculoskeletal stiffness [Unknown]
  - Spinal operation [Unknown]
  - Bone disorder [Unknown]
  - Arthropathy [Not Recovered/Not Resolved]
  - Tendon rupture [Unknown]
  - Knee arthroplasty [Unknown]
  - Feeling abnormal [Unknown]
